FAERS Safety Report 18173160 (Version 1)
Quarter: 2020Q3

REPORT INFORMATION
  Report Type: Spontaneous
  Country: US (occurrence: US)
  Receive Date: 20200819
  Receipt Date: 20200819
  Transmission Date: 20201103
  Serious: No
  Sender: FDA-Public Use
  Company Number: US-PFIZER INC-2019524350

PATIENT
  Age: 69 Year
  Sex: Male
  Weight: 77.11 kg

DRUGS (3)
  1. TOPAMAX [Suspect]
     Active Substance: TOPIRAMATE
     Indication: SEIZURE
     Dosage: 400 MG, DAILY
     Route: 048
  2. DILANTIN [Suspect]
     Active Substance: PHENYTOIN
     Indication: SEIZURE
     Dosage: 400 MG, DAILY (FOUR CAPSULES BY MOUTH DAILY/THERAPY START DATE: EVER SINCE HE WAS 12)
     Route: 048
  3. DILANTIN [Suspect]
     Active Substance: PHENYTOIN
     Dosage: 200 MG, 2X/DAY (TAKE 2 CAPSULES BY ORAL ROUTE 2 TIMES A DAY FOR 90 DAYS)
     Route: 048

REACTIONS (1)
  - Memory impairment [Unknown]
